FAERS Safety Report 18822950 (Version 1)
Quarter: 2021Q1

REPORT INFORMATION
  Report Type: Spontaneous
  Country: US (occurrence: US)
  Receive Date: 20210201
  Receipt Date: 20210201
  Transmission Date: 20210419
  Serious: No
  Sender: FDA-Public Use
  Company Number: US-EPIHEALTH-2020-US-002984

PATIENT
  Age: 35 Year
  Sex: Female
  Weight: 95.26 kg

DRUGS (2)
  1. RHOFADE [Suspect]
     Active Substance: OXYMETAZOLINE HYDROCHLORIDE
     Indication: ROSACEA
     Dosage: ONCE DAILY
     Route: 061
     Dates: start: 20200129, end: 20200204
  2. LABETOLOL [Concomitant]
     Active Substance: LABETALOL HYDROCHLORIDE
     Indication: HYPERTENSION

REACTIONS (4)
  - Rash papular [Recovering/Resolving]
  - Application site paraesthesia [Recovered/Resolved]
  - Rosacea [Recovered/Resolved]
  - Application site erythema [Recovered/Resolved]

NARRATIVE: CASE EVENT DATE: 20200129
